FAERS Safety Report 9131187 (Version 1)
Quarter: 2013Q1

REPORT INFORMATION
  Report Type: Spontaneous
  Country: ES (occurrence: ES)
  Receive Date: 20130301
  Receipt Date: 20130301
  Transmission Date: 20140127
  Serious: Yes (Other)
  Sender: FDA-Public Use
  Company Number: ES-PFIZER INC-2013056480

PATIENT
  Age: 72 Year
  Sex: Male
  Weight: 90 kg

DRUGS (4)
  1. PHENYTOIN SODIUM [Suspect]
     Indication: GRAND MAL CONVULSION
     Dosage: 1,600 MG, UNK
  2. PHENYTOIN SODIUM [Suspect]
     Dosage: 150 MG/8 HOURS
  3. PROPOFOL [Concomitant]
     Indication: GRAND MAL CONVULSION
     Dosage: 200 MG/H
  4. MORPHINE [Concomitant]
     Indication: GRAND MAL CONVULSION
     Dosage: 40 MG/DAY

REACTIONS (3)
  - Incorrect dose administered [Recovered/Resolved]
  - Ophthalmoplegia [Recovered/Resolved]
  - Areflexia [Recovered/Resolved]
